FAERS Safety Report 23148930 (Version 2)
Quarter: 2024Q1

REPORT INFORMATION
  Report Type: Spontaneous
  Country: DE (occurrence: DE)
  Receive Date: 20231106
  Receipt Date: 20240213
  Transmission Date: 20240410
  Serious: Yes (Other)
  Sender: FDA-Public Use
  Company Number: DE-ROCHE-3072265

PATIENT
  Age: 39 Year
  Sex: Female
  Weight: 86 kg

DRUGS (4)
  1. KESIMPTA [Suspect]
     Active Substance: OFATUMUMAB
     Indication: Product used for unknown indication
     Dosage: UNK
     Route: 065
  2. OCRELIZUMAB [Suspect]
     Active Substance: OCRELIZUMAB
     Indication: Product used for unknown indication
     Dosage: 600 MG
     Route: 042
     Dates: start: 2020
  3. OCRELIZUMAB [Suspect]
     Active Substance: OCRELIZUMAB
     Indication: Relapsing multiple sclerosis
     Dosage: 300 MG
     Route: 042
     Dates: start: 20220414
  4. OCRELIZUMAB [Suspect]
     Active Substance: OCRELIZUMAB
     Dosage: 600 MG (FOR 6 MONTH)
     Route: 042
     Dates: start: 20220428

REACTIONS (14)
  - Multiple sclerosis relapse [Not Recovered/Not Resolved]
  - B-lymphocyte count decreased [Not Recovered/Not Resolved]
  - Aphonia [Unknown]
  - Laryngitis [Unknown]
  - Gamma-glutamyltransferase increased [Unknown]
  - T-lymphocyte count increased [Unknown]
  - Alanine aminotransferase increased [Unknown]
  - Mean cell volume increased [Unknown]
  - C-reactive protein increased [Unknown]
  - Blood immunoglobulin M decreased [Unknown]
  - Natural killer cell count decreased [Unknown]
  - Blood immunoglobulin G decreased [Unknown]
  - Extra dose administered [Unknown]
  - Product administration error [Unknown]

NARRATIVE: CASE EVENT DATE: 20220407
